FAERS Safety Report 9155254 (Version 2)
Quarter: 2013Q4

REPORT INFORMATION
  Report Type: Spontaneous
  Country: GB (occurrence: GB)
  Receive Date: 20130311
  Receipt Date: 20131115
  Transmission Date: 20140711
  Serious: Yes (Other)
  Sender: FDA-Public Use
  Company Number: GB-WATSON-2013-03295

PATIENT
  Age: 83 Year
  Sex: Female

DRUGS (17)
  1. SIMVASTATIN (UNKNOWN) [Suspect]
     Indication: BLOOD CHOLESTEROL INCREASED
     Dosage: 40 MG, DAILY, TAKEN FOR A FEW YEARS
     Route: 048
  2. FLUVOXAMINE [Suspect]
     Indication: DEPRESSION
     Dosage: UNK; TAKEN FOR APPROX 16 YEARS
     Route: 048
  3. MIRTAZAPINE (UNKNOWN) [Suspect]
     Indication: DEPRESSION
     Dosage: 30 MG, DAILY, TAKEN FOR APPROX 16 YEARS
     Route: 048
  4. BISOPROLOL [Concomitant]
     Indication: PRODUCT USED FOR UNKNOWN INDICATION
     Dosage: UNK; REGULAR MEDICATION
     Route: 065
  5. BISOPROLOL [Concomitant]
     Dosage: REGULAR MEDICATION
  6. CLOPIDOGREL [Concomitant]
     Indication: PRODUCT USED FOR UNKNOWN INDICATION
     Dosage: UNK; REGULAR MEDICATION
     Route: 065
  7. CLOPIDOGREL [Concomitant]
     Dosage: REGULAR MEDICATION
  8. RAMIPRIL [Concomitant]
     Indication: PRODUCT USED FOR UNKNOWN INDICATION
     Dosage: UNK; REGULAR MEDICATION
     Route: 065
  9. RAMIPRIL [Concomitant]
     Dosage: REGULAR MEDICATION
  10. ASPIRIN [Concomitant]
     Indication: PRODUCT USED FOR UNKNOWN INDICATION
     Dosage: UNK; REGULAR MEDICATION
     Route: 065
  11. ASPIRIN [Concomitant]
     Dosage: REGULAR MEDICATION
  12. LANSOPRAZOLE [Concomitant]
     Indication: PRODUCT USED FOR UNKNOWN INDICATION
     Dosage: UNK; REGULAR MEDICATION
     Route: 065
  13. LANSOPRAZOLE [Concomitant]
     Dosage: REGULAR MEDICATION
  14. AMLODIPINE [Concomitant]
     Indication: PRODUCT USED FOR UNKNOWN INDICATION
     Dosage: UNK; REGULAR MEDICATION
     Route: 065
  15. AMLODIPINE [Concomitant]
     Dosage: REGULAR MEDICATION
  16. CARBOCISTEIN [Concomitant]
     Indication: PRODUCT USED FOR UNKNOWN INDICATION
     Dosage: UNK; REGULAR MEDICATION
     Route: 065
  17. FUROSEMIDE [Concomitant]
     Indication: PRODUCT USED FOR UNKNOWN INDICATION
     Dosage: UNK; REGULAR MEDICATION
     Route: 065

REACTIONS (1)
  - Interstitial lung disease [Recovering/Resolving]
